FAERS Safety Report 6894804-3 (Version None)
Quarter: 2010Q3

REPORT INFORMATION
  Report Type: 
  Country: None (occurrence: None)
  Receive Date: 20100802
  Receipt Date: 20100802
  Transmission Date: 20110219
  Serious: Yes (Hospitalization)
  Sender: FDA-Public Use
  Company Number: TW-ROXANE LABORATORIES, INC.-2010-DE-03643GD

PATIENT
  Age: 15 Year
  Sex: Male

DRUGS (3)
  1. SERTRALINE HYDROCHLORIDE [Suspect]
     Indication: AGGRESSION
     Dosage: 50 MG
  2. SERTRALINE HYDROCHLORIDE [Suspect]
     Indication: REPETITIVE SPEECH
  3. CONCERTA [Concomitant]
     Indication: ATTENTION DEFICIT/HYPERACTIVITY DISORDER
     Dosage: 18 MG
     Route: 048

REACTIONS (2)
  - MANIA [None]
  - PHYSICAL ASSAULT [None]
